FAERS Safety Report 16184035 (Version 1)
Quarter: 2019Q2

REPORT INFORMATION
  Report Type: Spontaneous
  Country: US (occurrence: US)
  Receive Date: 20190411
  Receipt Date: 20190411
  Transmission Date: 20190711
  Serious: Yes (Other)
  Sender: FDA-Public Use
  Company Number: US-TEVA-2019-US-1037916

PATIENT
  Sex: Male

DRUGS (1)
  1. FLUCONAZOLE. [Suspect]
     Active Substance: FLUCONAZOLE
     Indication: FIBROMYALGIA
     Route: 065

REACTIONS (4)
  - Apparent death [Unknown]
  - Dyspnoea [Unknown]
  - Speech disorder [Unknown]
  - Pharyngeal swelling [Unknown]
